FAERS Safety Report 7194382-8 (Version None)
Quarter: 2010Q4

REPORT INFORMATION
  Report Type: 
  Country: None (occurrence: None)
  Receive Date: 20101223
  Receipt Date: 20101214
  Transmission Date: 20110411
  Serious: Yes (Other)
  Sender: FDA-Public Use
  Company Number: US-BAYER-2010-006326

PATIENT
  Sex: Female

DRUGS (1)
  1. MAGNEVIST [Suspect]
     Route: 042

REACTIONS (1)
  - DYSPNOEA [None]
